FAERS Safety Report 8935949 (Version 1)
Quarter: 2012Q4

REPORT INFORMATION
  Report Type: 
  Country: US (occurrence: US)
  Receive Date: 20121130
  Receipt Date: 20121130
  Transmission Date: 20130627
  Serious: Yes (Hospitalization, Other)
  Sender: FDA-Public Use
  Company Number: US-PFIZER INC-2012299353

PATIENT
  Age: 27 Year
  Sex: Female

DRUGS (1)
  1. LYRICA [Suspect]
     Indication: FIBROMYALGIA
     Dosage: UNK
     Dates: end: 201210

REACTIONS (11)
  - Suicidal ideation [Unknown]
  - Arthritis [Unknown]
  - Convulsion [Unknown]
  - Syncope [Unknown]
  - Aggression [Unknown]
  - Impaired driving ability [Unknown]
  - Weight increased [Unknown]
  - Weight fluctuation [Unknown]
  - Decreased interest [Unknown]
  - Withdrawal syndrome [Unknown]
  - Pain [Unknown]
